FAERS Safety Report 20142406 (Version 2)
Quarter: 2021Q4

REPORT INFORMATION
  Report Type: Spontaneous
  Country: US (occurrence: US)
  Receive Date: 20211202
  Receipt Date: 20211216
  Transmission Date: 20220303
  Serious: Yes (Hospitalization)
  Sender: FDA-Public Use
  Company Number: US-TEVA-2021-US-1982308

PATIENT
  Age: 67 Year
  Sex: Male

DRUGS (2)
  1. LEFLUNOMIDE [Suspect]
     Active Substance: LEFLUNOMIDE
     Indication: Rheumatoid arthritis
     Dosage: RECEIVED INFUSION OF LEFLUNOMIDE
     Route: 065
  2. RITUXIMAB [Suspect]
     Active Substance: RITUXIMAB
     Indication: Rheumatoid arthritis
     Dosage: RECEIVED INFUSION OF RITUXIMAB
     Route: 065

REACTIONS (3)
  - Cat scratch disease [Recovered/Resolved]
  - Splenic infection bacterial [Recovered/Resolved]
  - Splenic abscess [Recovered/Resolved]
